FAERS Safety Report 20533132 (Version 1)
Quarter: 2022Q1

REPORT INFORMATION
  Report Type: Spontaneous
  Country: NZ (occurrence: NZ)
  Receive Date: 20220301
  Receipt Date: 20220301
  Transmission Date: 20220423
  Serious: Yes (Congenital Anomaly)
  Sender: FDA-Public Use
  Company Number: NZ-ABBVIE-22K-118-4295832-00

PATIENT
  Sex: Male

DRUGS (1)
  1. EPILIM [Suspect]
     Active Substance: VALPROATE SODIUM
     Indication: Maternal exposure timing unspecified
     Route: 064

REACTIONS (9)
  - Foetal anticonvulsant syndrome [Unknown]
  - Poor feeding infant [Unknown]
  - Speech disorder [Unknown]
  - Loss of personal independence in daily activities [Unknown]
  - Hypotonia [Unknown]
  - Cognitive disorder [Unknown]
  - Autism spectrum disorder [Unknown]
  - Autism spectrum disorder [Unknown]
  - Foetal exposure during pregnancy [Unknown]
